FAERS Safety Report 9387521 (Version 1)
Quarter: 2013Q3

REPORT INFORMATION
  Report Type: Spontaneous
  Country: US (occurrence: None)
  Receive Date: 20130702
  Receipt Date: 20130702
  Transmission Date: 20140515
  Serious: Yes (Death, Hospitalization)
  Sender: FDA-Public Use
  Company Number: NES-AE-13-005

PATIENT
  Age: 64 Year
  Sex: Male

DRUGS (1)
  1. MORPHINE [Suspect]
     Route: 048

REACTIONS (5)
  - Respiratory rate decreased [None]
  - Somnolence [None]
  - Myoclonus [None]
  - Cardiac arrest [None]
  - Overdose [None]
